FAERS Safety Report 12398498 (Version 1)
Quarter: 2016Q2

REPORT INFORMATION
  Report Type: Report from Study
  Country: CO (occurrence: CO)
  Receive Date: 20160524
  Receipt Date: 20160524
  Transmission Date: 20160815
  Serious: Yes (Other)
  Sender: FDA-Public Use
  Company Number: CO-JNJFOC-20160521081

PATIENT
  Age: 37 Year
  Sex: Female
  Weight: 60 kg

DRUGS (1)
  1. RISPERDAL CONSTA [Suspect]
     Active Substance: RISPERIDONE
     Indication: SCHIZOPHRENIA
     Route: 030
     Dates: start: 20130502, end: 20160502

REACTIONS (2)
  - Mammogram abnormal [Not Recovered/Not Resolved]
  - Blood prolactin increased [Not Recovered/Not Resolved]

NARRATIVE: CASE EVENT DATE: 20160510
